FAERS Safety Report 4914876-2 (Version None)
Quarter: 2006Q1

REPORT INFORMATION
  Report Type: 
  Country: None (occurrence: None)
  Receive Date: 20060217
  Receipt Date: 20060209
  Transmission Date: 20060701
  Serious: Yes (Other)
  Sender: FDA-Public Use
  Company Number: US-JNJFOC-20060202340

PATIENT
  Age: 54 Year
  Sex: Female
  Weight: 95.26 kg

DRUGS (1)
  1. MONISTAT 7 VAG CREAM W/DISP APPL REFORM [Suspect]
     Dosage: 2% VAGINAL CREAM
     Route: 067

REACTIONS (3)
  - DIARRHOEA [None]
  - ERYTHEMA [None]
  - GENERALISED OEDEMA [None]
